FAERS Safety Report 5569664-3 (Version None)
Quarter: 2007Q4

REPORT INFORMATION
  Report Type: 
  Country: None (occurrence: None)
  Receive Date: 20071220
  Receipt Date: 20071218
  Transmission Date: 20080405
  Serious: Yes (Hospitalization)
  Sender: FDA-Public Use
  Company Number: B0498268A

PATIENT
  Age: 54 Year
  Sex: Male

DRUGS (5)
  1. PAXIL [Suspect]
     Indication: DEPRESSION
     Dosage: 10MG SEE DOSAGE TEXT
     Route: 048
     Dates: start: 20070827, end: 20071122
  2. AMOXAPINE [Suspect]
     Indication: DEPRESSION
     Route: 048
     Dates: start: 20070827, end: 20071121
  3. AMOBAN [Concomitant]
     Indication: DEPRESSION
     Dosage: 7.5MG PER DAY
     Route: 048
     Dates: start: 20071025
  4. DEPAS [Concomitant]
     Indication: DEPRESSION
     Dosage: 2MG PER DAY
     Route: 048
     Dates: start: 20071025
  5. ARTANE [Concomitant]
     Indication: DEPRESSION
     Dosage: 6MG PER DAY
     Route: 048
     Dates: start: 20071113

REACTIONS (9)
  - CHILLS [None]
  - DIZZINESS [None]
  - DYSPEPSIA [None]
  - FEELING DRUNK [None]
  - HYPERHIDROSIS [None]
  - IRRITABILITY [None]
  - MYOCLONUS [None]
  - NAUSEA [None]
  - SEROTONIN SYNDROME [None]
